FAERS Safety Report 25081791 (Version 4)
Quarter: 2025Q2

REPORT INFORMATION
  Report Type: Spontaneous
  Country: CA (occurrence: CA)
  Receive Date: 20250317
  Receipt Date: 20250516
  Transmission Date: 20250716
  Serious: Yes (Other)
  Sender: CELLTRION
  Company Number: CA-PFIZER INC-202500038333

PATIENT

DRUGS (1)
  1. INFLECTRA [Suspect]
     Active Substance: INFLIXIMAB-DYYB
     Indication: Crohn^s disease
     Route: 041
     Dates: start: 20250113

REACTIONS (4)
  - Decreased appetite [Recovering/Resolving]
  - Cough [Recovering/Resolving]
  - Influenza [Recovered/Resolved]
  - Condition aggravated [Recovering/Resolving]
